FAERS Safety Report 15578245 (Version 2)
Quarter: 2018Q4

REPORT INFORMATION
  Report Type: Report from Study
  Country: US (occurrence: US)
  Receive Date: 20181102
  Receipt Date: 20181211
  Transmission Date: 20190205
  Serious: No
  Sender: FDA-Public Use
  Company Number: US-AMGEN-USASP2018151463

PATIENT
  Age: 64 Year
  Sex: Male

DRUGS (2)
  1. REPATHA [Suspect]
     Active Substance: EVOLOCUMAB
     Indication: HYPERCHOLESTEROLAEMIA
  2. REPATHA [Suspect]
     Active Substance: EVOLOCUMAB
     Indication: BLOOD CHOLESTEROL INCREASED
     Dosage: 140 MG, Q2WK
     Route: 065
     Dates: start: 201807

REACTIONS (10)
  - Alopecia [Unknown]
  - Erythema [Recovered/Resolved]
  - Nasopharyngitis [Recovering/Resolving]
  - Skin odour abnormal [Recovered/Resolved]
  - Pruritus [Unknown]
  - Weight increased [Unknown]
  - Abnormal faeces [Recovered/Resolved]
  - Burning sensation [Recovered/Resolved]
  - Skin abrasion [Recovered/Resolved]
  - Dysuria [Recovered/Resolved]

NARRATIVE: CASE EVENT DATE: 2018
